FAERS Safety Report 6462920-6 (Version None)
Quarter: 2009Q4

REPORT INFORMATION
  Report Type: 
  Country: None (occurrence: None)
  Receive Date: 20091123
  Receipt Date: 20091109
  Transmission Date: 20100525
  Serious: Yes (Hospitalization)
  Sender: FDA-Public Use
  Company Number: 2009AC000388

PATIENT
  Age: 54 Year
  Sex: Female
  Weight: 117.028 kg

DRUGS (99)
  1. DIGOXIN [Suspect]
     Dosage: 0.25 MG;QD;PO
     Route: 048
     Dates: start: 20000401, end: 20090616
  2. DIGOXIN [Suspect]
     Dosage: 0.125 MG;QD;PO
     Route: 048
  3. PLAVIX [Concomitant]
  4. ISORDIL [Concomitant]
  5. GLYBURIDE [Concomitant]
  6. METFORMIN HCL [Concomitant]
  7. LASIX [Concomitant]
  8. LABETALOL HCL [Concomitant]
  9. IRON SULFATETHIAMIN COMPOUND TAB [Concomitant]
  10. VYTORIN [Concomitant]
  11. CLONIDINE [Concomitant]
  12. BENICAR [Concomitant]
  13. METOLAZONE [Concomitant]
  14. TAZTIA [Concomitant]
  15. HYDRALAZINE HCL [Concomitant]
  16. COUMADIN [Concomitant]
  17. POTASSIUM CHLORIDE [Concomitant]
  18. PACERONE [Concomitant]
  19. DILTIAZEM [Concomitant]
  20. ASPIRIN [Concomitant]
  21. FELODIPINE [Concomitant]
  22. PROPYLTHIOURACIL TAB [Concomitant]
  23. BENAZEPRIL HYDROCHLORIDE [Concomitant]
  24. ISOSORBIDE [Concomitant]
  25. REGLAN [Concomitant]
  26. METRONIDAZOLE [Concomitant]
  27. DIFLUCAN [Concomitant]
  28. ZITHROMAX [Concomitant]
  29. CARDIZEM [Concomitant]
  30. NOVOFINE [Concomitant]
  31. ALBUTEROL [Concomitant]
  32. BETAPACE [Concomitant]
  33. CLORAZEPATE DIPOTASSIUM [Concomitant]
  34. ESTRADIOL [Concomitant]
  35. ALPHEGAN [Concomitant]
  36. HUMALOG [Concomitant]
  37. COREG [Concomitant]
  38. CLINDAMYCIN [Concomitant]
  39. AVALIDE [Concomitant]
  40. PROTONIX [Concomitant]
  41. XALATAN [Concomitant]
  42. NORVASC [Concomitant]
  43. PROMETHAZINE [Concomitant]
  44. METOCLOPRAMIDE [Concomitant]
  45. TOPROL-XL [Concomitant]
  46. KLOR-CON [Concomitant]
  47. PREMARIN [Concomitant]
  48. TRAMADOL HCL [Concomitant]
  49. LEVAQUIN [Concomitant]
  50. AMIODARONE HCL [Concomitant]
  51. FLUCONAZOLE [Concomitant]
  52. BEXTRA [Concomitant]
  53. LUMIGAN [Concomitant]
  54. MACROBID [Concomitant]
  55. FLUOCINONIDE [Concomitant]
  56. HUMULIN R [Concomitant]
  57. CIPRO [Concomitant]
  58. HYDROXYZINE [Concomitant]
  59. HYDROCORTISONE [Concomitant]
  60. K-DUR [Concomitant]
  61. ZIAC [Concomitant]
  62. HISTINEX [Concomitant]
  63. BISOPROLOL [Concomitant]
  64. CARMOL [Concomitant]
  65. ALTACE [Concomitant]
  66. LOPRESSOR [Concomitant]
  67. ISORBID [Concomitant]
  68. DIGIBIND [Concomitant]
  69. KAYEXALATE [Concomitant]
  70. NITROGLYCERIN [Concomitant]
  71. BUMEX [Concomitant]
  72. RYTHMOL [Concomitant]
  73. SLOW-MAG [Concomitant]
  74. CATAPRES [Concomitant]
  75. CLIDINUM [Concomitant]
  76. TERAZOL 1 [Concomitant]
  77. FUROSEMIDE [Concomitant]
  78. FERROUS SULFATE TAB [Concomitant]
  79. TIMOLOL [Concomitant]
  80. WARFARIN SODIUM [Concomitant]
  81. CYCLOBENZAPRINE [Concomitant]
  82. LORAZEPAM [Concomitant]
  83. VITAMIN D [Concomitant]
  84. SIMVASTATIN [Concomitant]
  85. DILTIAZEM [Concomitant]
  86. COUMADIN [Concomitant]
  87. ISOSORBIDE [Concomitant]
  88. POTASSIUM [Concomitant]
  89. LOTENSIN [Concomitant]
  90. FELODIPINE ER [Concomitant]
  91. CALCITRIOL [Concomitant]
  92. PACERONE [Concomitant]
  93. ASPIRIN [Concomitant]
  94. MULTI-VITAMIN [Concomitant]
  95. HUMALOG [Concomitant]
  96. TIAZAC [Concomitant]
  97. BENAZEPRIL HYDROCHLORIDE [Concomitant]
  98. ZAROXOLYN [Concomitant]
  99. SIMVASTATIN [Concomitant]

REACTIONS (59)
  - ABDOMINAL PAIN [None]
  - ANAEMIA OF CHRONIC DISEASE [None]
  - ANHEDONIA [None]
  - ANXIETY [None]
  - ARRHYTHMIA [None]
  - ASTHENIA [None]
  - ATRIAL FIBRILLATION [None]
  - ATRIAL FLUTTER [None]
  - ATRIOVENTRICULAR BLOCK COMPLETE [None]
  - BLOOD THYROID STIMULATING HORMONE DECREASED [None]
  - BRADYCARDIA [None]
  - CARDIOACTIVE DRUG LEVEL ABOVE THERAPEUTIC [None]
  - CHEST DISCOMFORT [None]
  - CHEST PAIN [None]
  - CORONARY ARTERY DISEASE [None]
  - CORONARY ARTERY STENOSIS [None]
  - DIABETIC NEPHROPATHY [None]
  - DIARRHOEA [None]
  - DRUG INTERACTION [None]
  - DYSPNOEA [None]
  - DYSPNOEA PAROXYSMAL NOCTURNAL [None]
  - ECONOMIC PROBLEM [None]
  - FLUID OVERLOAD [None]
  - FLUID RETENTION [None]
  - GASTROENTERITIS [None]
  - HOT FLUSH [None]
  - HYPERKALAEMIA [None]
  - HYPERLIPIDAEMIA [None]
  - HYPERTENSION [None]
  - HYPOKALAEMIA [None]
  - HYPOPHAGIA [None]
  - HYPOTENSION [None]
  - INSULIN-REQUIRING TYPE 2 DIABETES MELLITUS [None]
  - INTERNATIONAL NORMALISED RATIO DECREASED [None]
  - LEFT VENTRICULAR HYPERTROPHY [None]
  - MENTAL DISORDER [None]
  - MULTIPLE INJURIES [None]
  - MYOCARDIAL ISCHAEMIA [None]
  - NAUSEA [None]
  - OEDEMA PERIPHERAL [None]
  - ORTHOPNOEA [None]
  - PAIN [None]
  - PALPITATIONS [None]
  - PLATELET COUNT DECREASED [None]
  - PROTHROMBIN TIME PROLONGED [None]
  - PULMONARY OEDEMA [None]
  - RENAL FAILURE ACUTE [None]
  - RENAL TUBULAR NECROSIS [None]
  - SLEEP APNOEA SYNDROME [None]
  - SOCIAL AVOIDANT BEHAVIOUR [None]
  - SUPRAVENTRICULAR TACHYCARDIA [None]
  - SYNCOPE [None]
  - THERAPEUTIC AGENT TOXICITY [None]
  - THYROXINE FREE INCREASED [None]
  - TREATMENT NONCOMPLIANCE [None]
  - UNEVALUABLE EVENT [None]
  - VISION BLURRED [None]
  - VOMITING [None]
  - WEIGHT INCREASED [None]
